FAERS Safety Report 8993124 (Version 3)
Quarter: 2013Q1

REPORT INFORMATION
  Report Type: Spontaneous
  Country: US (occurrence: US)
  Receive Date: 20130102
  Receipt Date: 20130118
  Transmission Date: 20140127
  Serious: Yes (Death, Hospitalization)
  Sender: FDA-Public Use
  Company Number: US-BAXTER-2012BAX028836

PATIENT
  Age: 79 Year
  Sex: Female

DRUGS (2)
  1. DIANEAL LOW CALCIUM [Suspect]
     Indication: PERITONEAL DIALYSIS
     Route: 033
  2. DIANEAL LOW CALCIUM [Suspect]
     Indication: PERITONEAL DIALYSIS
     Route: 033

REACTIONS (6)
  - Cardiac disorder [Fatal]
  - Ulcer haemorrhage [Unknown]
  - Cholelithiasis [Not Recovered/Not Resolved]
  - Blood count abnormal [Recovered/Resolved]
  - Syncope [Not Recovered/Not Resolved]
  - Cholecystitis infective [Recovering/Resolving]
